FAERS Safety Report 6332638-9 (Version None)
Quarter: 2009Q3

REPORT INFORMATION
  Report Type: 
  Country: None (occurrence: None)
  Receive Date: 20090828
  Receipt Date: 20090826
  Transmission Date: 20100115
  Serious: Yes (Other)
  Sender: FDA-Public Use
  Company Number: BR-JNJFOC-20090806567

PATIENT
  Age: 87 Year
  Sex: Male
  Weight: 65 kg

DRUGS (1)
  1. REMINYL ER [Suspect]
     Indication: DEMENTIA ALZHEIMER'S TYPE
     Route: 065

REACTIONS (4)
  - CAPSULE ISSUE [None]
  - MEDICATION ERROR [None]
  - NO ADVERSE EVENT [None]
  - WRONG TECHNIQUE IN DRUG USAGE PROCESS [None]
